FAERS Safety Report 9518298 (Version 1)
Quarter: 2013Q3

REPORT INFORMATION
  Report Type: Spontaneous
  Country: GB (occurrence: None)
  Receive Date: 20130910
  Receipt Date: 20130910
  Transmission Date: 20140515
  Serious: Yes (Hospitalization, Other)
  Sender: FDA-Public Use
  Company Number: GB-MACLEODS PHARMA-000129

PATIENT
  Age: 88 Year
  Sex: Female

DRUGS (2)
  1. LEVOFLOXACIN [Suspect]
     Indication: LOWER RESPIRATORY TRACT INFECTION
     Route: 048
     Dates: end: 20120326
  2. FERROUS SULPHATE [Suspect]
     Indication: PRODUCT USED FOR UNKNOWN INDICATION
     Route: 048

REACTIONS (7)
  - Lower respiratory tract infection [None]
  - Pulmonary fibrosis [None]
  - Concomitant disease aggravated [None]
  - Treatment failure [None]
  - Drug interaction [None]
  - Medication error [None]
  - Drug prescribing error [None]
